FAERS Safety Report 21216876 (Version 1)
Quarter: 2022Q3

REPORT INFORMATION
  Report Type: Spontaneous
  Country: DE (occurrence: DE)
  Receive Date: 20220816
  Receipt Date: 20220816
  Transmission Date: 20221027
  Serious: Yes (Congenital Anomaly)
  Sender: FDA-Public Use
  Company Number: DE-EMBRYOTOX-202105786

PATIENT
  Age: 6 Week
  Sex: Male
  Weight: 2.97 kg

DRUGS (7)
  1. CETIRIZINE HYDROCHLORIDE [Suspect]
     Active Substance: CETIRIZINE HYDROCHLORIDE
     Indication: Hypersensitivity
     Dosage: 10 [MG/D ], 0. - 36.2. GESTATIONAL WEEK
     Route: 064
     Dates: start: 20210419, end: 20211229
  2. COMIRNATY [Concomitant]
     Active Substance: TOZINAMERAN
     Indication: COVID-19 immunisation
     Dosage: 34.2. - 34.2. GESTATIONAL WEEK
     Route: 064
     Dates: start: 20211215, end: 20211215
  3. COMIRNATY [Concomitant]
     Active Substance: TOZINAMERAN
     Dosage: 18.1. - 18.1. GESTATIONAL WEEK
     Route: 064
     Dates: start: 20210824, end: 20210824
  4. INFLUENZA VIRUS VACCINE [Concomitant]
     Active Substance: INFLUENZA VIRUS VACCINE
     Indication: Immunisation
     Dosage: 31. - 32. GESTATIONAL WEEK
     Route: 064
  5. VAXZEVRIA [Concomitant]
     Active Substance: AZD-1222
     Indication: COVID-19 immunisation
     Dosage: TRIMESTER: PRECONCEPTIONAL
     Route: 064
  6. LEVOTHYROXINE SODIUM [Concomitant]
     Active Substance: LEVOTHYROXINE SODIUM
     Indication: Hypothyroidism
     Dosage: 75 [UG/D ], 4.2. - 33.3. GESTATIONAL WEEK
     Route: 064
     Dates: start: 20210519, end: 20211209
  7. PERTUSSIS VACCINE [Concomitant]
     Active Substance: PERTUSSIS VACCINE
     Indication: Immunisation
     Dosage: 31. - 32. GESTATIONAL WEEK
     Route: 064

REACTIONS (3)
  - Ventricular septal defect [Unknown]
  - Atrial septal defect [Unknown]
  - Foetal exposure during pregnancy [Unknown]
